FAERS Safety Report 7167147-0 (Version None)
Quarter: 2010Q4

REPORT INFORMATION
  Report Type: 
  Country: None (occurrence: None)
  Receive Date: 20101216
  Receipt Date: 20101207
  Transmission Date: 20110411
  Serious: Yes (Congenital Anomaly)
  Sender: FDA-Public Use
  Company Number: GXKR2010GB13888

PATIENT

DRUGS (1)
  1. AZITHROMYCIN [Suspect]
     Dosage: 1 G, (MATERNAL DOSE)
     Route: 064
     Dates: start: 20100303

REACTIONS (3)
  - DRUG EXPOSURE DURING PREGNANCY [None]
  - GASTROSCHISIS [None]
  - LIMB REDUCTION DEFECT [None]
